FAERS Safety Report 8012583-3 (Version None)
Quarter: 2011Q4

REPORT INFORMATION
  Report Type: 
  Country: None (occurrence: None)
  Receive Date: 20111229
  Receipt Date: 20111215
  Transmission Date: 20120403
  Serious: Yes (Other)
  Sender: FDA-Public Use
  Company Number: LK-RANBAXY-2011R3-51307

PATIENT
  Age: 25 Year
  Sex: Male

DRUGS (1)
  1. AMOXICILLIN AND CLAVULANATE POTASSIUM [Suspect]
     Indication: PRODUCT USED FOR UNKNOWN INDICATION
     Dosage: UNK
     Route: 065

REACTIONS (5)
  - MENTAL STATUS CHANGES [None]
  - DYSPNOEA [None]
  - HYPERHIDROSIS [None]
  - PERIPHERAL COLDNESS [None]
  - TACHYCARDIA [None]
